FAERS Safety Report 4890101-6 (Version None)
Quarter: 2005Q4

REPORT INFORMATION
  Report Type: 
  Country: None (occurrence: None)
  Receive Date: 20051215
  Receipt Date: 20041117
  Transmission Date: 20060501
  Serious: Yes (Hospitalization, Other)
  Sender: FDA-Public Use
  Company Number: 2004095824

PATIENT
  Age: 75 Year
  Sex: Male
  Weight: 107.9561 kg

DRUGS (5)
  1. BEXTRA [Suspect]
     Indication: ANKYLOSING SPONDYLITIS
     Dosage: 20 MG (20 MG, QD INTERVAL: EVERY DAY), ORAL
     Route: 048
     Dates: start: 20040401, end: 20041101
  2. COREG [Concomitant]
  3. NITROGLYCERIN [Concomitant]
  4. UNSPECIFIED CHOLESTEROL MEDICATION (CHOLESTEROL- AND TRIGLYCERIDE REDU [Concomitant]
  5. DIGITEC (DIGOXIN) [Concomitant]

REACTIONS (4)
  - CHEST PAIN [None]
  - MALAISE [None]
  - MYOCARDIAL INFARCTION [None]
  - PAIN IN EXTREMITY [None]
